FAERS Safety Report 11103295 (Version 1)
Quarter: 2015Q2

REPORT INFORMATION
  Report Type: Other
  Country: GB (occurrence: GB)
  Receive Date: 20150511
  Receipt Date: 20150511
  Transmission Date: 20150821
  Serious: Yes (Other)
  Sender: FDA-Public Use
  Company Number: GB-MYLANLABS-2015M1014389

PATIENT

DRUGS (2)
  1. NAPROXEN. [Suspect]
     Active Substance: NAPROXEN
     Dosage: 1 DF, TID
  2. DICLOFENAC [Suspect]
     Active Substance: DICLOFENAC
     Indication: BACK PAIN
     Dosage: INTENDED DURATION: 1 WEEK

REACTIONS (5)
  - Groin pain [Unknown]
  - Contraindicated drug administered [Unknown]
  - Abdominal pain [Unknown]
  - Incontinence [Unknown]
  - Dysuria [Unknown]
